FAERS Safety Report 10143091 (Version 1)
Quarter: 2014Q2

REPORT INFORMATION
  Report Type: Spontaneous
  Country: US (occurrence: None)
  Receive Date: 20140429
  Receipt Date: 20140429
  Transmission Date: 20141212
  Serious: Yes (Hospitalization)
  Sender: FDA-Public Use
  Company Number: None

PATIENT
  Age: 56 Year
  Sex: Male
  Weight: 93.1 kg

DRUGS (2)
  1. AMLODIPINE [Suspect]
     Indication: HYPERTENSION
     Route: 048
     Dates: start: 20131126, end: 20140323
  2. METOPROLOL [Suspect]
     Indication: HYPERTENSION
     Route: 048
     Dates: start: 20120101, end: 20140323

REACTIONS (4)
  - Intentional overdose [None]
  - Cardiogenic shock [None]
  - Convulsion [None]
  - Mental status changes [None]
